FAERS Safety Report 23203027 (Version 1)
Quarter: 2023Q4

REPORT INFORMATION
  Report Type: Spontaneous
  Country: GB (occurrence: GB)
  Receive Date: 20231120
  Receipt Date: 20231120
  Transmission Date: 20240110
  Serious: Yes (Hospitalization)
  Sender: FDA-Public Use
  Company Number: GB-MYLANLABS-2023M1121202

PATIENT
  Age: 4 Decade
  Sex: Male

DRUGS (3)
  1. BUDESONIDE [Suspect]
     Active Substance: BUDESONIDE
     Indication: Microvillous inclusion disease
     Dosage: 9 MILLIGRAM, QD
     Route: 065
  2. HYDROCORTISONE [Suspect]
     Active Substance: HYDROCORTISONE
     Indication: Microvillous inclusion disease
     Dosage: 100 MILLIGRAM, QID
     Route: 042
  3. PREDNISOLONE [Suspect]
     Active Substance: PREDNISOLONE
     Indication: Microvillous inclusion disease
     Dosage: 40 MILLIGRAM
     Route: 065

REACTIONS (2)
  - Kaposi^s sarcoma [Recovered/Resolved]
  - Drug ineffective [Unknown]
